FAERS Safety Report 15684748 (Version 1)
Quarter: 2018Q4

REPORT INFORMATION
  Report Type: Spontaneous
  Country: AU (occurrence: AU)
  Receive Date: 20181204
  Receipt Date: 20181204
  Transmission Date: 20190205
  Serious: Yes (Hospitalization)
  Sender: FDA-Public Use
  Company Number: AU-GW PHARMA-201809AUGW0394

PATIENT

DRUGS (7)
  1. EPIDIOLEX [Suspect]
     Active Substance: CANNABIDIOL
     Indication: EPILEPSY
     Dosage: 26.2MG/KG, 220 MILLIGRAM, BID
     Route: 048
     Dates: start: 20160808
  2. SUSTAGEN [Concomitant]
     Indication: NUTRITIONAL SUPPLEMENTATION
     Dosage: 500 MILLILITER, QD
     Route: 048
  3. DILANTIN [PHENYTOIN] [Concomitant]
     Indication: EPILEPSY
     Dosage: 39 MILLIGRAM, TID
     Route: 048
     Dates: start: 201702
  4. LAMICTAL [Concomitant]
     Active Substance: LAMOTRIGINE
     Indication: EPILEPSY
     Dosage: 50 MILLIGRAM, BID
     Route: 048
     Dates: start: 2012
  5. MIDAZOLAM [Concomitant]
     Active Substance: MIDAZOLAM HYDROCHLORIDE
     Indication: EPILEPSY
     Dosage: 5 MILLIGRAM, PRN
     Route: 048
  6. KEPPRA [Concomitant]
     Active Substance: LEVETIRACETAM
     Indication: EPILEPSY
     Dosage: 320 MILLIGRAM, BID
     Route: 048
     Dates: start: 2010
  7. TOPAMAX [Concomitant]
     Active Substance: TOPIRAMATE
     Indication: EPILEPSY
     Dosage: 40 MILLIGRAM, BID
     Route: 048
     Dates: start: 2013

REACTIONS (1)
  - Seizure [Recovered/Resolved]

NARRATIVE: CASE EVENT DATE: 20180720
